FAERS Safety Report 7685041-3 (Version None)
Quarter: 2011Q3

REPORT INFORMATION
  Report Type: 
  Country: None (occurrence: None)
  Receive Date: 20110801
  Receipt Date: 20110721
  Transmission Date: 20111222
  Serious: No
  Sender: FDA-Public Use
  Company Number: US-145228

PATIENT
  Sex: Female

DRUGS (2)
  1. WINRHO SDF LIQUID [Suspect]
     Indication: IDIOPATHIC THROMBOCYTOPENIC PURPURA
     Dates: start: 20110701, end: 20110701
  2. HERCEPTIN [Concomitant]

REACTIONS (1)
  - HAEMOGLOBIN DECREASED [None]
